FAERS Safety Report 4564661-9 (Version None)
Quarter: 2005Q1

REPORT INFORMATION
  Report Type: 
  Country: None (occurrence: None)
  Receive Date: 20050126
  Receipt Date: 20050120
  Transmission Date: 20050727
  Serious: No
  Sender: FDA-Public Use
  Company Number: A044-002-005404

PATIENT
  Age: 84 Year
  Sex: Female
  Weight: 50 kg

DRUGS (5)
  1. ARICEPT [Suspect]
     Indication: DEMENTIA ALZHEIMER'S TYPE
     Dosage: SEE IMAGE
     Route: 048
     Dates: start: 20041120, end: 20041220
  2. ARICEPT [Suspect]
     Indication: DEMENTIA ALZHEIMER'S TYPE
     Dosage: SEE IMAGE
     Route: 048
     Dates: start: 20041221, end: 20041225
  3. TIANEPTINE (TIANEPTINE) [Concomitant]
  4. MOCLOBEMIDE (MOCLOBEMIDE) [Concomitant]
  5. FENOFIBRATE [Concomitant]

REACTIONS (2)
  - PURPURA [None]
  - TOXIC SKIN ERUPTION [None]
